FAERS Safety Report 10249793 (Version 1)
Quarter: 2014Q2

REPORT INFORMATION
  Report Type: Spontaneous
  Country: DE (occurrence: DE)
  Receive Date: 20140620
  Receipt Date: 20140620
  Transmission Date: 20141212
  Serious: Yes (Congenital Anomaly, Other)
  Sender: FDA-Public Use
  Company Number: DE-ACTAVIS-2014-12961

PATIENT
  Age: 1 Day
  Sex: Female
  Weight: 2.2 kg

DRUGS (2)
  1. PANTOPRAZOLE (UNKNOWN) [Suspect]
     Indication: GASTRITIS
     Dosage: 40 MG, QOD
     Route: 064
     Dates: start: 20121006, end: 20130717
  2. FOLIO FORTE [Concomitant]
     Indication: PROPHYLAXIS OF NEURAL TUBE DEFECT
     Dosage: 0.8 MG, DAILY
     Route: 064
     Dates: start: 20121006, end: 20130717

REACTIONS (4)
  - Pyloric stenosis [Recovered/Resolved with Sequelae]
  - Small for dates baby [Unknown]
  - Pneumothorax [Recovered/Resolved]
  - Foetal exposure timing unspecified [Unknown]
